FAERS Safety Report 4334767-8 (Version None)
Quarter: 2004Q2

REPORT INFORMATION
  Report Type: 
  Country: None (occurrence: None)
  Receive Date: 20040407
  Receipt Date: 20040407
  Transmission Date: 20050107
  Serious: Yes (Hospitalization)
  Sender: FDA-Public Use
  Company Number: None

PATIENT
  Age: 57 Year
  Sex: Male
  Weight: 90.7194 kg

DRUGS (4)
  1. TRISEPTIN [Suspect]
     Indication: DRUG TOXICITY
     Dosage: SKIN SCRUB
     Route: 061
  2. . [Concomitant]
  3. . [Concomitant]
  4. . [Concomitant]

REACTIONS (2)
  - DRUG TOXICITY [None]
  - NERVOUS SYSTEM DISORDER [None]
